FAERS Safety Report 11383078 (Version 2)
Quarter: 2019Q3

REPORT INFORMATION
  Report Type: Spontaneous
  Country: US (occurrence: US)
  Receive Date: 20150814
  Receipt Date: 20190829
  Transmission Date: 20191004
  Serious: Yes (Death, Hospitalization, Disabling, Other)
  Sender: FDA-Public Use
  Company Number: US-009507513-1508USA006120

PATIENT
  Sex: Male
  Weight: 45.35 kg

DRUGS (3)
  1. OMEGA-3 MARINE TRIGLYCERIDES [Concomitant]
     Active Substance: FISH OIL
     Dosage: I CAP 2 TIMES A DAY
  2. CRESTOR [Concomitant]
     Active Substance: ROSUVASTATIN CALCIUM
     Dosage: 1 TAB ONCE A DAY AT BEDTIME
     Route: 048
  3. JANUMET [Suspect]
     Active Substance: METFORMIN HYDROCHLORIDE\SITAGLIPTIN PHOSPHATE
     Indication: TYPE 2 DIABETES MELLITUS
     Dosage: 1 DOSAGE FORM, TWICE DAILY
     Route: 048
     Dates: start: 20080918, end: 201206

REACTIONS (15)
  - Diabetes mellitus [Not Recovered/Not Resolved]
  - Transient ischaemic attack [Unknown]
  - Gastrooesophageal reflux disease [Unknown]
  - Mental disorder [Unknown]
  - Chromaturia [Unknown]
  - Amnesia [Unknown]
  - Insomnia [Unknown]
  - Anxiety [Not Recovered/Not Resolved]
  - Pancreatic carcinoma [Fatal]
  - Metastases to liver [Fatal]
  - Cerebrovascular accident [Unknown]
  - Coronary artery bypass [Unknown]
  - Muscular weakness [Unknown]
  - Benign prostatic hyperplasia [Not Recovered/Not Resolved]
  - Haematuria [Not Recovered/Not Resolved]

NARRATIVE: CASE EVENT DATE: 2009
